FAERS Safety Report 12114987 (Version 1)
Quarter: 2016Q1

REPORT INFORMATION
  Report Type: Spontaneous
  Country: GB (occurrence: None)
  Receive Date: 20160224
  Receipt Date: 20160224
  Transmission Date: 20160526
  Serious: No
  Sender: FDA-Public Use
  Company Number: None

PATIENT
  Age: 34 Year
  Weight: 69.85 kg

DRUGS (2)
  1. DOXYCYCLINE 100 MG KENT PHARMACEUTICALS LTD [Suspect]
     Active Substance: DOXYCYCLINE
     Indication: SINUSITIS
     Dosage: 2 DAY 1, 1  A DAY AFTER
     Route: 048
  2. COD LIVER OIL WITH ODOURLESS GARLIC [Concomitant]

REACTIONS (4)
  - Vision blurred [None]
  - Condition aggravated [None]
  - Feeling abnormal [None]
  - Loss of consciousness [None]

NARRATIVE: CASE EVENT DATE: 20160222
